FAERS Safety Report 6007060-5 (Version None)
Quarter: 2008Q4

REPORT INFORMATION
  Report Type: 
  Country: None (occurrence: None)
  Receive Date: 20081217
  Receipt Date: 20080129
  Transmission Date: 20090506
  Serious: No
  Sender: FDA-Public Use
  Company Number: US-ASTRAZENECA-2008UW00125

PATIENT
  Age: 68 Year
  Sex: Male

DRUGS (3)
  1. CRESTOR [Suspect]
     Route: 048
  2. NEXIUM [Concomitant]
     Route: 048
  3. ALTACE [Concomitant]

REACTIONS (1)
  - DIVERTICULITIS [None]
